FAERS Safety Report 23145880 (Version 1)
Quarter: 2023Q4

REPORT INFORMATION
  Report Type: Other
  Country: NL (occurrence: NL)
  Receive Date: 20231104
  Receipt Date: 20231104
  Transmission Date: 20240110
  Serious: Yes (Other)
  Sender: FDA-Public Use
  Company Number: NL-CELLTRION HEALTHCARE HUNGARY KFT-2023NL020522

PATIENT
  Age: 6 Year
  Sex: Female

DRUGS (2)
  1. RITUXIMAB [Suspect]
     Active Substance: RITUXIMAB
     Indication: Systemic scleroderma
     Dosage: 375 MG/M2; ONE CYCLE CONSISTED OF 2 INFUSIONS WITH 7-14 DAYS INTERVAL (STANDARD RTX DOSE)
     Route: 042
     Dates: start: 200612, end: 202002
  2. MYCOPHENOLIC ACID [Concomitant]
     Active Substance: MYCOPHENOLIC ACID

REACTIONS (3)
  - Off label use [Unknown]
  - Infusion related reaction [Unknown]
  - Drug specific antibody absent [Unknown]
